FAERS Safety Report 7528974-0 (Version None)
Quarter: 2011Q2

REPORT INFORMATION
  Report Type: 
  Country: None (occurrence: None)
  Receive Date: 20110607
  Receipt Date: 20101214
  Transmission Date: 20111010
  Serious: Yes (Hospitalization, Other)
  Sender: FDA-Public Use
  Company Number: US-GENZYME-CAMP-1001199

PATIENT
  Sex: Female
  Weight: 84 kg

DRUGS (26)
  1. CAMPATH [Suspect]
     Dosage: 5 MG, QD DAY 1,4,7; CYCLE 3
     Route: 058
  2. BACTRIM [Concomitant]
     Indication: PRODUCT USED FOR UNKNOWN INDICATION
     Dosage: UNK
     Route: 065
  3. CAMPATH [Suspect]
     Dosage: 5 MG, QD DAY 1,4,7; CYCLE 4
     Route: 058
     Dates: start: 20101230, end: 20110105
  4. METHOTREXATE [Suspect]
     Indication: ACUTE LYMPHOCYTIC LEUKAEMIA
     Dosage: 100 MG/M2, QD ON DAY 1 OF CYCLE 1
     Route: 042
     Dates: start: 20101126, end: 20101126
  5. METHOTREXATE [Suspect]
     Dosage: 150 MG/M2, QD ON DAY 1 OF CYCLE 2
     Route: 042
     Dates: start: 20101210, end: 20101210
  6. DEXAMETHASONE [Suspect]
     Indication: ACUTE LYMPHOCYTIC LEUKAEMIA
     Dosage: 6 MG/M2, QD ON DAYS 1-10 OF CYCLE 1
     Route: 048
     Dates: start: 20101126, end: 20101205
  7. DEXAMETHASONE [Suspect]
     Dosage: 6 MG/M2, QD ON DAYS 1-10 OF CYCLE 4 OF 6
     Route: 048
     Dates: start: 20101230
  8. ELSPAR [Suspect]
     Dosage: 500 IU/KG, QD ON DAY 2 OF CYCLE 4
     Route: 030
     Dates: start: 20101231, end: 20101231
  9. VORICONAZOLE [Concomitant]
     Indication: PRODUCT USED FOR UNKNOWN INDICATION
     Dosage: UNK
     Route: 065
  10. FAMCICLOVIR [Concomitant]
     Indication: PRODUCT USED FOR UNKNOWN INDICATION
     Dosage: UNK
     Route: 065
  11. ELSPAR [Suspect]
     Indication: ACUTE LYMPHOCYTIC LEUKAEMIA
     Dosage: 500 IU/KG, QD ON DAY 2 OF CYCLE 1
     Route: 030
     Dates: start: 20101127, end: 20101127
  12. CASPOFUNGIN ACETATE [Concomitant]
     Indication: PRODUCT USED FOR UNKNOWN INDICATION
     Dosage: UNK
     Route: 065
  13. CAMPATH [Suspect]
     Indication: ACUTE LYMPHOCYTIC LEUKAEMIA
     Dosage: 5 MG, QD DAY 1,7; CYCLE 1
     Route: 058
     Dates: start: 20101126, end: 20101202
  14. DEXAMETHASONE [Suspect]
     Dosage: 6 MG/M2, QD ON DAYS 1-10 OF CYCLE 3 OF 6
     Route: 048
  15. VINCRISTINE SULFATE [Suspect]
     Indication: ACUTE LYMPHOCYTIC LEUKAEMIA
     Dosage: 2 MG, QD ON DAY 2 OF CYCLE 1
     Route: 040
     Dates: start: 20101127, end: 20101127
  16. ZOSYN [Concomitant]
     Indication: PRODUCT USED FOR UNKNOWN INDICATION
     Dosage: UNK
     Route: 065
  17. DEXAMETHASONE [Suspect]
     Dosage: 6 MG/M2, QD ON DAYS 1-10 OF CYCLE 2
     Route: 048
     Dates: start: 20101210, end: 20101219
  18. ELSPAR [Suspect]
     Dosage: 500 IU/KG, QD ON DAY 2 OF CYCLE 3
     Route: 030
  19. METHOTREXATE [Suspect]
     Dosage: 225 MG/M2, QD ON DAY 1 OF CYCLE 3
     Route: 042
  20. METHOTREXATE [Suspect]
     Dosage: 225  MG/M2, QD ON DAY 1 OF CYCLE 4
     Route: 042
     Dates: start: 20101230, end: 20101230
  21. VINCRISTINE SULFATE [Suspect]
     Dosage: 2 MG, QD ON DAY 2 OF CYCLE 2
     Route: 040
     Dates: start: 20101211, end: 20101211
  22. VINCRISTINE SULFATE [Suspect]
     Dosage: 2 MG, QD ON DAY 2 OF CYCLE 3
     Route: 040
  23. CAMPATH [Suspect]
     Dosage: 5 MG, QD DAY 1,4,7; CYCLE 2
     Route: 058
     Dates: start: 20101210, end: 20101216
  24. ELSPAR [Suspect]
     Dosage: 500 IU/KG, QD ON DAY 2 OF CYCLE 2
     Route: 030
     Dates: start: 20101211, end: 20101211
  25. VINCRISTINE SULFATE [Suspect]
     Dosage: 2 MG, QD ON DAY 2 OF CYCLE 4
     Route: 040
     Dates: start: 20101231, end: 20101231
  26. VANCOMYCIN [Concomitant]
     Indication: PRODUCT USED FOR UNKNOWN INDICATION
     Dosage: UNK
     Route: 065

REACTIONS (5)
  - INFECTION [None]
  - ABDOMINAL PAIN [None]
  - ASPARTATE AMINOTRANSFERASE INCREASED [None]
  - ALANINE AMINOTRANSFERASE INCREASED [None]
  - DIARRHOEA [None]
